FAERS Safety Report 9807766 (Version 1)
Quarter: 2014Q1

REPORT INFORMATION
  Report Type: Report from Study
  Country: CA (occurrence: CA)
  Receive Date: 20140110
  Receipt Date: 20140110
  Transmission Date: 20141002
  Serious: Yes (Hospitalization)
  Sender: FDA-Public Use
  Company Number: CA-JNJFOC-20140101391

PATIENT
  Age: 35 Year
  Sex: Female
  Weight: 61.69 kg

DRUGS (1)
  1. REMICADE [Suspect]
     Indication: CROHN^S DISEASE
     Route: 042
     Dates: start: 201211

REACTIONS (2)
  - Depression [Not Recovered/Not Resolved]
  - Anxiety [Unknown]
